FAERS Safety Report 5553356-0 (Version None)
Quarter: 2007Q4

REPORT INFORMATION
  Report Type: 
  Country: None (occurrence: None)
  Receive Date: 20071212
  Receipt Date: 20071212
  Transmission Date: 20080405
  Serious: Yes (Life-Threatening, Hospitalization)
  Sender: FDA-Public Use
  Company Number: None

PATIENT
  Sex: Female
  Weight: 71.2147 kg

DRUGS (6)
  1. ZOLINZA [Suspect]
     Indication: BREAST CANCER METASTATIC
     Dosage: 400MG DAILY 21DAYS OF 28 PO
     Route: 048
     Dates: start: 20061214, end: 20070522
  2. TAMOXIFEN CITRATE [Concomitant]
  3. COMPAZINE [Concomitant]
  4. OXYCODONE HCL [Concomitant]
  5. ACIPHEX [Concomitant]
  6. ZOLINZA [Suspect]
     Indication: BREAST CANCER METASTATIC
     Dosage: 300MG DAILY 21 DAYS OF 28  PO
     Route: 048
     Dates: start: 20070531, end: 20070924

REACTIONS (8)
  - BACK PAIN [None]
  - BLOOD BILIRUBIN INCREASED [None]
  - DEEP VEIN THROMBOSIS [None]
  - HYPOTENSION [None]
  - HYPOVOLAEMIC SHOCK [None]
  - INTRA-ABDOMINAL HAEMORRHAGE [None]
  - PULMONARY EMBOLISM [None]
  - RETROPERITONEAL HAEMATOMA [None]
